FAERS Safety Report 6793386-4 (Version None)
Quarter: 2010Q2

REPORT INFORMATION
  Report Type: 
  Country: None (occurrence: None)
  Receive Date: 20100624
  Receipt Date: 20100331
  Transmission Date: 20101027
  Serious: Yes (Other)
  Sender: FDA-Public Use
  Company Number: US-MYLANLABS-2010S1001107

PATIENT
  Age: 54 Year
  Sex: Male
  Weight: 104.78 kg

DRUGS (8)
  1. CLOZAPINE [Suspect]
     Indication: SCHIZOPHRENIA
     Route: 048
     Dates: end: 20100311
  2. LITHIUM [Concomitant]
  3. NORVASC [Concomitant]
  4. FLOMAX /01280302/ [Concomitant]
  5. ZOLOFT [Concomitant]
  6. HALDOL [Concomitant]
  7. MIRALAX [Concomitant]
  8. PERI-COLACE [Concomitant]

REACTIONS (2)
  - GRANULOCYTOPENIA [None]
  - LEUKOPENIA [None]
